FAERS Safety Report 21861170 (Version 1)
Quarter: 2023Q1

REPORT INFORMATION
  Report Type: Report from Study
  Country: ZA (occurrence: ZA)
  Receive Date: 20230113
  Receipt Date: 20230113
  Transmission Date: 20230417
  Serious: Yes (Death, Other)
  Sender: FDA-Public Use
  Company Number: ZA-AMGEN-ZAFSL2023002784

PATIENT
  Age: 74 Year
  Sex: Male

DRUGS (1)
  1. ARANESP [Suspect]
     Active Substance: DARBEPOETIN ALFA
     Indication: Chronic kidney disease
     Dosage: 100 MICROGRAM, Q2WK
     Route: 058
     Dates: start: 202008

REACTIONS (4)
  - Plasma cell myeloma [Unknown]
  - Death [Fatal]
  - Anaemia macrocytic [Unknown]
  - Lymphopenia [Unknown]
